FAERS Safety Report 9837873 (Version 1)
Quarter: 2013Q4

REPORT INFORMATION
  Report Type: Spontaneous
  Country: US (occurrence: None)
  Receive Date: 20131205
  Receipt Date: 20131205
  Transmission Date: 20140711
  Serious: Yes (Other)
  Sender: FDA-Public Use
  Company Number: 163-POMAL-13101997

PATIENT
  Age: 76 Year
  Sex: Male
  Weight: 93.44 kg

DRUGS (8)
  1. POMALYST [Suspect]
     Indication: PLASMA CELL MYELOMA
     Route: 048
     Dates: start: 20130917, end: 20131002
  2. WARFARIN SODIUM (WARFARIN SODIUM) [Concomitant]
  3. COMPLEX (BECOSYM FORTE)(CAPSULES) [Concomitant]
  4. CALCIUM CARBONATE (CALCIUM CARBONATE) (CALCIUM CARBONATE) [Concomitant]
  5. DEXAMETHASONE (DEXAMETHASONE) (4 MILLIGRAM, TABLETS) [Concomitant]
  6. FLUAZEPAM HCL (FLURAZEPAM HYDROCHLORIDE) (CAPSULES0 [Concomitant]
  7. GABAPENTIN (GABAPENTIN)(CAPSULES) [Concomitant]
  8. METOPROLOL TARTRATE (METOPROLOL TARTRATE) (TABLETS) (METOPROLOL TARTRATE) [Concomitant]

REACTIONS (4)
  - Neutrophil count abnormal [None]
  - Full blood count decreased [None]
  - White blood cell count abnormal [None]
  - Platelet count abnormal [None]
